FAERS Safety Report 5354851-X (Version None)
Quarter: 2007Q2

REPORT INFORMATION
  Report Type: 
  Country: None (occurrence: None)
  Receive Date: 20070611
  Receipt Date: 20070605
  Transmission Date: 20071010
  Serious: Yes (Death, Hospitalization, Other)
  Sender: FDA-Public Use
  Company Number: 163-20785-07030253

PATIENT
  Age: 80 Year
  Sex: Male

DRUGS (3)
  1. THALOMID [Suspect]
     Indication: MYELODYSPLASTIC SYNDROME
     Dosage: 100 MG, DAILY, ORAL
     Route: 048
     Dates: start: 20050401, end: 20070101
  2. HYDROXYUREA [Suspect]
     Indication: MYELOPROLIFERATIVE DISORDER
     Dates: end: 20070202
  3. MORPHINE [Concomitant]

REACTIONS (10)
  - ANAEMIA [None]
  - BONE MARROW FAILURE [None]
  - CARDIAC FAILURE CONGESTIVE [None]
  - HAEMATOCRIT DECREASED [None]
  - MYELOFIBROSIS [None]
  - NEUROPATHY [None]
  - PNEUMONIA [None]
  - PNEUMONITIS [None]
  - THROMBOCYTOPENIA [None]
  - WHITE BLOOD CELL COUNT INCREASED [None]
